FAERS Safety Report 20510073 (Version 1)
Quarter: 2022Q1

REPORT INFORMATION
  Report Type: Spontaneous
  Country: US (occurrence: US)
  Receive Date: 20220224
  Receipt Date: 20220224
  Transmission Date: 20220424
  Serious: Yes (Hospitalization, Other)
  Sender: FDA-Public Use
  Company Number: US-AMGEN-USASP2022029730

PATIENT
  Age: 43 Year
  Sex: Male

DRUGS (10)
  1. XGEVA [Suspect]
     Active Substance: DENOSUMAB
     Indication: Prostate cancer metastatic
     Dosage: UNK
     Route: 065
  2. PEGFILGRASTIM [Suspect]
     Active Substance: PEGFILGRASTIM
     Indication: Product used for unknown indication
     Dosage: UNK
     Route: 065
  3. LEUPROLIDE ACETATE [Concomitant]
     Active Substance: LEUPROLIDE ACETATE
  4. BICALUTAMIDE [Concomitant]
     Active Substance: BICALUTAMIDE
  5. ENZALUTAMIDE [Concomitant]
     Active Substance: ENZALUTAMIDE
  6. DOCETAXEL [Concomitant]
     Active Substance: DOCETAXEL
  7. CARBOPLATIN [Concomitant]
     Active Substance: CARBOPLATIN
  8. CABAZITAXEL [Concomitant]
     Active Substance: CABAZITAXEL
  9. NIVOLUMAB [Concomitant]
     Active Substance: NIVOLUMAB
  10. IPILIMUMAB [Concomitant]
     Active Substance: IPILIMUMAB

REACTIONS (10)
  - Hypocalcaemia [Recovered/Resolved]
  - Hypophosphataemia [Recovered/Resolved]
  - Blood alkaline phosphatase increased [Unknown]
  - Metabolic acidosis [Recovering/Resolving]
  - Renal tubular acidosis [Recovering/Resolving]
  - Vitamin D decreased [Unknown]
  - Hyperphosphaturia [Unknown]
  - Blood parathyroid hormone increased [Unknown]
  - Fibroblast growth factor 23 increased [Unknown]
  - Prostate cancer metastatic [Unknown]
